FAERS Safety Report 7558025-3 (Version None)
Quarter: 2011Q2

REPORT INFORMATION
  Report Type: 
  Country: None (occurrence: None)
  Receive Date: 20110620
  Receipt Date: 20110615
  Transmission Date: 20111010
  Serious: Yes (Hospitalization)
  Sender: FDA-Public Use
  Company Number: GB-EISAI INC-E2090-01637-SPO-GB

PATIENT
  Age: 22 Year
  Sex: Female

DRUGS (4)
  1. ZONEGRAN [Suspect]
     Indication: EPILEPSY
     Dosage: 75 MG IN AM
     Route: 048
     Dates: start: 20110424, end: 20110601
  2. ZONEGRAN [Suspect]
     Dosage: 100 MG IN PM
     Route: 048
     Dates: start: 20110424, end: 20110601
  3. CLOBAZAM [Concomitant]
     Dosage: 10 MG DAILY
     Route: 048
  4. ZONEGRAN [Suspect]
     Dosage: GRADUALLY WEANED OFF
     Route: 048
     Dates: start: 20110601, end: 20110601

REACTIONS (7)
  - BACK PAIN [None]
  - PALLOR [None]
  - URINARY RETENTION [None]
  - ASTHENIA [None]
  - PYELONEPHRITIS [None]
  - IMMUNODEFICIENCY [None]
  - HAEMOGLOBIN DECREASED [None]
